FAERS Safety Report 8481713-1 (Version None)
Quarter: 2012Q3

REPORT INFORMATION
  Report Type: 
  Country: None (occurrence: None)
  Receive Date: 20120702
  Receipt Date: 20120618
  Transmission Date: 20120928
  Serious: Yes (Hospitalization, Other)
  Sender: FDA-Public Use
  Company Number: FR-PFIZER INC-2012155828

PATIENT
  Age: 55 Year
  Sex: Male

DRUGS (3)
  1. OLMESARTAN MEDOXOMIL [Interacting]
     Indication: PRODUCT USED FOR UNKNOWN INDICATION
     Dosage: UNK
     Route: 048
     Dates: start: 20120201
  2. PIROXICAM [Suspect]
     Indication: PRODUCT USED FOR UNKNOWN INDICATION
     Dosage: UNK
     Route: 048
  3. MALARONE [Interacting]
     Indication: PRODUCT USED FOR UNKNOWN INDICATION
     Dosage: UNK
     Route: 048
     Dates: start: 20120201

REACTIONS (3)
  - RASH [None]
  - PHOTOSENSITIVITY REACTION [None]
  - DRUG INTERACTION [None]
